FAERS Safety Report 5817658-2 (Version None)
Quarter: 2008Q3

REPORT INFORMATION
  Report Type: 
  Country: None (occurrence: None)
  Receive Date: 20080722
  Receipt Date: 20080205
  Transmission Date: 20090109
  Serious: Yes (Other)
  Sender: FDA-Public Use
  Company Number: US-SANOFI-SYNTHELABO-A03200706439

PATIENT
  Sex: Male
  Weight: 108.4 kg

DRUGS (10)
  1. POTASSIUM CHLORIDE [Concomitant]
     Indication: ELECTROLYTE SUBSTITUTION THERAPY
     Route: 048
     Dates: start: 20070101
  2. LASIX [Concomitant]
     Indication: HYPERTENSION
     Route: 048
     Dates: start: 20070101
  3. ATENOLOL [Concomitant]
     Indication: CORONARY ARTERY DISEASE
     Route: 048
     Dates: start: 19950101
  4. ATENOLOL [Concomitant]
     Indication: HYPERTENSION
     Route: 048
     Dates: start: 19950101
  5. Q10 VITAMINS [Concomitant]
     Indication: DRUG USE FOR UNKNOWN INDICATION
     Dosage: UNK
     Route: 065
  6. FISH OIL [Concomitant]
     Indication: DRUG USE FOR UNKNOWN INDICATION
     Dosage: UNK
     Route: 065
  7. PLAVIX [Suspect]
     Indication: CORONARY ARTERIAL STENT INSERTION
     Route: 048
     Dates: start: 20070313
  8. HYDROCODONE BITARTRATE [Concomitant]
     Indication: DRUG USE FOR UNKNOWN INDICATION
     Dosage: 5/550 AS NEEDED
     Route: 048
  9. VYTORIN [Concomitant]
     Indication: BLOOD CHOLESTEROL INCREASED
     Dosage: 10/40 MG DAILY
     Route: 048
     Dates: start: 20060914
  10. NEURONTIN [Concomitant]
     Indication: NEUROPATHY PERIPHERAL
     Route: 048

REACTIONS (1)
  - CORONARY ARTERY STENOSIS [None]
